FAERS Safety Report 5177364-7 (Version None)
Quarter: 2006Q4

REPORT INFORMATION
  Report Type: 
  Country: None (occurrence: None)
  Receive Date: 20061218
  Receipt Date: 20060816
  Transmission Date: 20070319
  Serious: Yes (Hospitalization, Other)
  Sender: FDA-Public Use
  Company Number: PHEH2006US10512

PATIENT
  Age: 65 Year
  Sex: Female

DRUGS (7)
  1. ZOMETA [Suspect]
     Indication: MULTIPLE MYELOMA
     Dosage: 4 MG, Q3MO
     Dates: start: 20020101, end: 20050101
  2. LOPRESSOR [Concomitant]
  3. CELEXA [Concomitant]
  4. AREDIA [Suspect]
     Indication: MULTIPLE MYELOMA
     Dates: start: 20000101, end: 20040101
  5. DECADRON                                /CAN/ [Concomitant]
     Indication: MULTIPLE MYELOMA
     Dosage: 40 MG, UNK
     Dates: start: 20000101, end: 20000101
  6. ADRIAMYCIN PFS [Concomitant]
     Indication: MULTIPLE MYELOMA
     Dates: start: 20000101, end: 20000101
  7. MELPHALAN [Concomitant]
     Indication: MULTIPLE MYELOMA
     Dosage: 200 UNK, UNK
     Dates: start: 20000101, end: 20000101

REACTIONS (13)
  - BONE DISORDER [None]
  - BREATH ODOUR [None]
  - CARDIAC MURMUR [None]
  - CARDIAC OPERATION [None]
  - GINGIVITIS [None]
  - IMPAIRED HEALING [None]
  - MITRAL VALVE REPLACEMENT [None]
  - ORAL SOFT TISSUE DISORDER [None]
  - OSTEONECROSIS [None]
  - PAIN [None]
  - PRIMARY SEQUESTRUM [None]
  - TOOTH EXTRACTION [None]
  - TOOTH INJURY [None]
